FAERS Safety Report 7904148-6 (Version None)
Quarter: 2011Q4

REPORT INFORMATION
  Report Type: 
  Country: None (occurrence: None)
  Receive Date: 20111109
  Receipt Date: 20111103
  Transmission Date: 20120403
  Serious: Yes (Life-Threatening, Hospitalization, Other)
  Sender: FDA-Public Use
  Company Number: DE-PFIZER INC-2011268822

PATIENT
  Age: 76 Year
  Sex: Female

DRUGS (4)
  1. ONDANSETRON [Suspect]
     Dosage: 8 MG, NEARLY 3X MONTHLY
     Route: 042
     Dates: start: 20110314, end: 20110704
  2. FENISTIL [Suspect]
     Dosage: 4 MG, NEARLY 3X MONTHLY
     Route: 042
     Dates: start: 20110314, end: 20110704
  3. TAXOL [Suspect]
     Indication: OVARIAN CANCER
     Dosage: 100 - 160 MG, NEARLY 2X MONTH
     Route: 042
     Dates: start: 20110314, end: 20110704
  4. RANITIDINE [Suspect]
     Dosage: 50 MG, NEARLY 3X MONTHLY
     Route: 042
     Dates: start: 20110314, end: 20110704

REACTIONS (1)
  - RENAL FAILURE ACUTE [None]
